FAERS Safety Report 7438033-3 (Version None)
Quarter: 2011Q2

REPORT INFORMATION
  Report Type: 
  Country: None (occurrence: None)
  Receive Date: 20110426
  Receipt Date: 20110415
  Transmission Date: 20111010
  Serious: Yes (Hospitalization)
  Sender: FDA-Public Use
  Company Number: PHHY2011US32165

PATIENT
  Sex: Female

DRUGS (11)
  1. COVERSYL [Concomitant]
     Dosage: UNK
  2. ALLOPURINOL [Suspect]
     Dosage: 100 MG
  3. PRESERVISION LUTEIN EYE VITA.+MIN.SUP.SOFTG. [Concomitant]
     Dosage: UNK
  4. LIPITOR [Concomitant]
     Dosage: UNK
  5. NEORAL [Suspect]
     Indication: HEART TRANSPLANT
     Dosage: 140 MG
     Route: 048
     Dates: start: 20020101
  6. CARDIOASPIRINE [Concomitant]
     Dosage: UNK
  7. EMCONCOR [Concomitant]
  8. BERIVINE [Concomitant]
     Dosage: UNK
  9. ARANESP [Suspect]
     Dosage: UNK
     Dates: start: 20100914, end: 20101207
  10. CELLCEPT [Concomitant]
     Dosage: UNK
  11. ROCALTROL [Concomitant]
     Dosage: UNK

REACTIONS (2)
  - ERYTHROPOIESIS ABNORMAL [None]
  - HAEMOGLOBIN DECREASED [None]
